FAERS Safety Report 8622115 (Version 4)
Quarter: 2013Q1

REPORT INFORMATION
  Report Type: Spontaneous
  Country: US (occurrence: US)
  Receive Date: 20120619
  Receipt Date: 20130128
  Transmission Date: 20140127
  Serious: Yes (Other)
  Sender: FDA-Public Use
  Company Number: US-PFIZER INC-2012143114

PATIENT
  Age: 67 Year
  Sex: Female
  Weight: 53.52 kg

DRUGS (7)
  1. CELEBREX [Suspect]
     Indication: ARTHRITIS
     Dosage: UNK
     Route: 048
  2. CELEBREX [Suspect]
     Dosage: 200 MG, DAILY
     Dates: start: 201210
  3. ARTHROTEC [Suspect]
     Indication: ARTHRITIS
     Dosage: UNK
  4. LYRICA [Suspect]
     Indication: PAIN IN EXTREMITY
     Dosage: UNK, 1X/DAY
     Route: 048
  5. LYRICA [Suspect]
     Indication: ARTHRITIS
     Dosage: 125 MG IN MORNING AND 150MG IN NIGHT, 2X/DAY
     Route: 048
     Dates: start: 201205, end: 201301
  6. LYRICA [Suspect]
     Indication: MULTIPLE SCLEROSIS
  7. HYDROCODONE [Concomitant]
     Indication: PAIN
     Dosage: 325 MG, 4X/DAY

REACTIONS (6)
  - Drug ineffective [Unknown]
  - Sjogren^s syndrome [Unknown]
  - Pain in extremity [Not Recovered/Not Resolved]
  - Arthritis [Unknown]
  - Fatigue [Recovered/Resolved]
  - Headache [Not Recovered/Not Resolved]
